FAERS Safety Report 7522488-X (Version None)
Quarter: 2011Q2

REPORT INFORMATION
  Report Type: 
  Country: None (occurrence: None)
  Receive Date: 20110603
  Receipt Date: 20110523
  Transmission Date: 20111010
  Serious: Yes (Other)
  Sender: FDA-Public Use
  Company Number: JP-ROCHE-779037

PATIENT

DRUGS (1)
  1. BEVACIZUMAB [Suspect]
     Route: 031

REACTIONS (3)
  - ACUTE RESPIRATORY FAILURE [None]
  - PULMONARY ALVEOLAR HAEMORRHAGE [None]
  - ACUTE LUNG INJURY [None]
